FAERS Safety Report 10822469 (Version 1)
Quarter: 2015Q1

REPORT INFORMATION
  Report Type: Spontaneous
  Country: US (occurrence: US)
  Receive Date: 20150218
  Receipt Date: 20150218
  Transmission Date: 20150721
  Serious: No
  Sender: FDA-Public Use
  Company Number: US-MYLANLABS-2014M1014190

PATIENT
  Age: 44 Year
  Sex: Male
  Weight: 99.77 kg

DRUGS (1)
  1. EPIPEN [Suspect]
     Active Substance: EPINEPHRINE
     Dosage: 0.3 MG, ONCE
     Route: 058
     Dates: start: 20141211, end: 20141211

REACTIONS (3)
  - Accidental exposure to product [Not Recovered/Not Resolved]
  - Injection site pain [Not Recovered/Not Resolved]
  - Expired device used [Not Recovered/Not Resolved]

NARRATIVE: CASE EVENT DATE: 20141211
